FAERS Safety Report 25643719 (Version 1)
Quarter: 2025Q3

REPORT INFORMATION
  Report Type: Spontaneous
  Country: US (occurrence: US)
  Receive Date: 20250805
  Receipt Date: 20250805
  Transmission Date: 20251021
  Serious: Yes (Hospitalization)
  Sender: GLAXOSMITHKLINE
  Company Number: US-GLAXOSMITHKLINE INC-US2025AMR096766

PATIENT
  Sex: Female
  Weight: 63.039 kg

DRUGS (1)
  1. NUCALA [Suspect]
     Active Substance: MEPOLIZUMAB
     Indication: Asthma
     Dosage: 1 ML, Q4W 1 ML UNDER THE SKIN

REACTIONS (2)
  - Hospitalisation [Unknown]
  - Asthma [Unknown]
